FAERS Safety Report 18562189 (Version 1)
Quarter: 2020Q4

REPORT INFORMATION
  Report Type: Report from Study
  Country: BR (occurrence: BR)
  Receive Date: 20201130
  Receipt Date: 20201130
  Transmission Date: 20210114
  Serious: Yes (Life-Threatening, Hospitalization)
  Sender: FDA-Public Use
  Company Number: BR-GILEAD-2020-0489345

PATIENT
  Age: 68 Year
  Sex: Female
  Weight: 102 kg

DRUGS (69)
  1. ENOXAPARIN [Concomitant]
     Active Substance: ENOXAPARIN
     Dosage: 100 MG
     Dates: start: 20200726, end: 20200803
  2. AZITHROMYCIN ANHYDROUS. [Concomitant]
     Active Substance: AZITHROMYCIN ANHYDROUS
     Indication: COVID-19
     Dates: start: 20200722, end: 20200727
  3. DIPYRONE [Concomitant]
     Active Substance: DIPYRONE
     Indication: COVID-19
     Dosage: 2000 MG
     Dates: start: 20200722, end: 20200722
  4. AMIODARONE [Concomitant]
     Active Substance: AMIODARONE
     Indication: ATRIAL FIBRILLATION
     Dosage: 8 CAPSULE OTHER
     Dates: start: 20200725, end: 20200725
  5. FENTANIL [Concomitant]
     Active Substance: FENTANYL
     Indication: COVID-19
     Dosage: 20 ML
     Dates: start: 20200725, end: 20200801
  6. INSULIN [Concomitant]
     Active Substance: INSULIN NOS
     Dosage: 5 IU
     Dates: start: 20200729, end: 20200729
  7. FUROSEMIDE. [Concomitant]
     Active Substance: FUROSEMIDE
  8. DEXAMETHASONE. [Concomitant]
     Active Substance: DEXAMETHASONE
     Indication: COVID-19
     Dates: start: 20200722, end: 20200727
  9. PANTOPRAZOLE [Concomitant]
     Active Substance: PANTOPRAZOLE
     Dosage: 40 MG
     Dates: start: 20200722, end: 20200724
  10. NORADRENALINE [NOREPINEPHRINE] [Concomitant]
     Active Substance: NOREPINEPHRINE
     Indication: HAEMODYNAMIC INSTABILITY
     Dosage: 20 MG
     Dates: start: 20200725, end: 20200725
  11. SUCCINILCOLINA [Concomitant]
     Active Substance: SUCCINYLCHOLINE CHLORIDE
     Indication: COVID-19
     Dosage: 100 MG
     Dates: start: 20200725, end: 20200725
  12. ENCRISE [Concomitant]
     Dosage: 20 MG
     Dates: start: 20200803, end: 20200803
  13. MEROPENEM. [Concomitant]
     Active Substance: MEROPENEM
     Dosage: 2000 MG
     Dates: start: 20200804, end: 20200804
  14. VANCOMICINA [VANCOMYCIN] [Concomitant]
     Active Substance: VANCOMYCIN
     Dosage: 2000 MG
     Dates: start: 20200804, end: 20200804
  15. VANCOMICINA [VANCOMYCIN] [Concomitant]
     Active Substance: VANCOMYCIN
     Dosage: 1000 MG
     Dates: start: 20200804, end: 20200804
  16. INSULIN [Concomitant]
     Active Substance: INSULIN NOS
     Indication: COVID-19
     Dates: start: 20200722, end: 20200722
  17. INSULIN [Concomitant]
     Active Substance: INSULIN NOS
     Dates: start: 20200729, end: 20200802
  18. INSULIN [Concomitant]
     Active Substance: INSULIN NOS
     Dates: start: 20200804, end: 20200804
  19. OSELTAMIVIR PHOSPHATE. [Concomitant]
     Active Substance: OSELTAMIVIR PHOSPHATE
  20. CALCIUM CHLORIDE;POTASSIUM CHLORIDE;SODIUM CHLORIDE [Concomitant]
  21. REMDESIVIR. [Suspect]
     Active Substance: REMDESIVIR
     Indication: COVID-19 PNEUMONIA
     Dosage: MOST RECENT DOSE OF REMDESIVIR AT 15:00 100 ML
     Route: 042
     Dates: start: 20200724, end: 20200724
  22. ENOXAPARIN [Concomitant]
     Active Substance: ENOXAPARIN
     Dosage: 60 MG
     Dates: start: 20200726, end: 20200726
  23. DIPYRONE [Concomitant]
     Active Substance: DIPYRONE
     Dosage: 2000 MG
     Dates: start: 20200801, end: 20200801
  24. PLASIL [METOCLOPRAMIDE] [Concomitant]
     Indication: COVID-19
     Dosage: 10 MG
     Dates: start: 20200722
  25. PRECEDEX [Concomitant]
     Active Substance: DEXMEDETOMIDINE HYDROCHLORIDE
     Dosage: 100 UG
     Dates: start: 20200722, end: 20200724
  26. INSULIN [Concomitant]
     Active Substance: INSULIN NOS
     Dosage: 5 IU
     Dates: start: 20200802, end: 20200802
  27. INSULIN [Concomitant]
     Active Substance: INSULIN NOS
     Dates: start: 20200727, end: 20200727
  28. INSULIN [Concomitant]
     Active Substance: INSULIN NOS
     Dates: start: 20200802, end: 20200803
  29. INSULIN [Concomitant]
     Active Substance: INSULIN NOS
     Dates: start: 20200803, end: 20200803
  30. NORADRENALINE [NOREPINEPHRINE] [Concomitant]
     Active Substance: NOREPINEPHRINE
  31. TOCILIZUMAB. [Suspect]
     Active Substance: TOCILIZUMAB
     Indication: COVID-19 PNEUMONIA
     Dosage: DATE OF MOST RECENT DOSE OF TOCILIZUMAB PRIOR TO ADVERSE EVENT ONSET 25 JUL 2020 AT 11:04 100 ML
     Route: 042
     Dates: start: 20200724
  32. TOCILIZUMAB. [Suspect]
     Active Substance: TOCILIZUMAB
     Dosage: DATE OF MOST RECENT DOSE OF TOCILIZUMAB PRIOR TO ADVERSE EVENT ONSET 25/JUL/2020 AT 11:04
     Route: 042
     Dates: start: 20200724
  33. ENOXAPARIN [Concomitant]
     Active Substance: ENOXAPARIN
     Dosage: 40 MG
     Dates: start: 20200728
  34. LIDOCAINE. [Concomitant]
     Active Substance: LIDOCAINE
     Indication: COVID-19
     Dosage: 8 ML
     Dates: start: 20200725, end: 20200725
  35. INSULIN [Concomitant]
     Active Substance: INSULIN NOS
     Dosage: 5 IU
     Dates: start: 20200725, end: 20200725
  36. INSULIN [Concomitant]
     Active Substance: INSULIN NOS
     Dosage: 1000 ML
     Dates: start: 20200722, end: 20200723
  37. LIDOCAINE HYDROCHLORIDE. [Concomitant]
     Active Substance: LIDOCAINE HYDROCHLORIDE
     Indication: ENDOTRACHEAL INTUBATION
     Dates: start: 20200803, end: 20200803
  38. DEXTROCETAMINE [Concomitant]
  39. SCOPOLAMINE [HYOSCINE] [Concomitant]
     Active Substance: SCOPOLAMINE
  40. REMDESIVIR. [Suspect]
     Active Substance: REMDESIVIR
     Dosage: MOST RECENT DOSE OF REMDESIVIR AT 18:19 100 ML
     Route: 042
     Dates: start: 20200724, end: 20200724
  41. ENOXAPARIN [Concomitant]
     Active Substance: ENOXAPARIN
     Indication: DEEP VEIN THROMBOSIS
     Dosage: 40 MG
     Dates: start: 20200722, end: 20200727
  42. NORADRENALINE [NOREPINEPHRINE] [Concomitant]
     Active Substance: NOREPINEPHRINE
     Dosage: 20 MG
     Dates: start: 20200803, end: 20200803
  43. OMEPRAZOLE. [Concomitant]
     Active Substance: OMEPRAZOLE
     Dosage: 40 MG
     Dates: start: 20200725, end: 20200803
  44. METHYLPREDNISOLONE. [Concomitant]
     Active Substance: METHYLPREDNISOLONE
     Indication: COVID-19
     Dates: start: 20200727, end: 20200729
  45. METHYLPREDNISOLONE. [Concomitant]
     Active Substance: METHYLPREDNISOLONE
     Dates: start: 20200731, end: 20200801
  46. MIDAZOLAM. [Concomitant]
     Active Substance: MIDAZOLAM
     Indication: SEDATION
     Dosage: 100 MG
     Dates: start: 20200725, end: 20200730
  47. MIDAZOLAM. [Concomitant]
     Active Substance: MIDAZOLAM
     Dosage: 100 MG
     Dates: start: 20200803, end: 20200803
  48. LACTATED RINGERS SOLUTION [Concomitant]
     Active Substance: CALCIUM CHLORIDE\POTASSIUM CHLORIDE\SODIUM CHLORIDE\SODIUM LACTATE
     Dosage: 500 ML
     Dates: start: 20200725, end: 20200725
  49. INSULIN [Concomitant]
     Active Substance: INSULIN NOS
     Dosage: 5 IU
     Dates: start: 20200727, end: 20200727
  50. SUCCINYLCHOLINE CHLORIDE. [Concomitant]
     Active Substance: SUCCINYLCHOLINE CHLORIDE
  51. VANCOMYCIN [Concomitant]
     Active Substance: VANCOMYCIN
  52. POLOXAMINE [Concomitant]
  53. SINVASTATINA [Concomitant]
     Active Substance: SIMVASTATIN
     Indication: DYSLIPIDAEMIA
     Dosage: 40 MG
     Dates: start: 20200722, end: 20200803
  54. AMIODARONE [Concomitant]
     Active Substance: AMIODARONE
     Dosage: 1200 MG
     Dates: start: 20200725, end: 20200725
  55. ROCURONIUM [Concomitant]
     Active Substance: ROCURONIUM BROMIDE
     Indication: COVID-19
     Dosage: 40 MG
     Dates: start: 20200725, end: 20200727
  56. LACTATED RINGERS SOLUTION [Concomitant]
     Active Substance: CALCIUM CHLORIDE\POTASSIUM CHLORIDE\SODIUM CHLORIDE\SODIUM LACTATE
     Dosage: 500 ML
     Dates: start: 20200727, end: 20200727
  57. INSULIN [Concomitant]
     Active Substance: INSULIN NOS
     Dosage: 5 IU
     Dates: start: 20200731, end: 20200731
  58. INSULIN [Concomitant]
     Active Substance: INSULIN NOS
     Dates: start: 20200803, end: 20200803
  59. PLASIL [METOCLOPRAMIDE] [Concomitant]
     Dosage: 5 MG
     Dates: start: 20200730, end: 20200804
  60. PURAN [Concomitant]
     Active Substance: LEVOTHYROXINE SODIUM
     Indication: HYPOTHYROIDISM
     Dates: start: 20200722, end: 20200725
  61. PURAN [Concomitant]
     Active Substance: LEVOTHYROXINE SODIUM
     Dosage: 25 UG
     Dates: start: 20200727, end: 20200804
  62. PRECEDEX [Concomitant]
     Active Substance: DEXMEDETOMIDINE HYDROCHLORIDE
     Indication: ANXIETY
     Dosage: 200 UG
     Dates: start: 20200722
  63. METHYLPREDNISOLONE. [Concomitant]
     Active Substance: METHYLPREDNISOLONE
     Dates: start: 20200803, end: 20200804
  64. CEFTRIAXONE. [Concomitant]
     Active Substance: CEFTRIAXONE
     Indication: COVID-19
     Dosage: 2 G
     Dates: start: 20200722, end: 20200729
  65. TAMIFLU [Concomitant]
     Active Substance: OSELTAMIVIR PHOSPHATE
     Indication: COVID-19
     Dosage: 75 MG
     Dates: start: 20200722, end: 20200724
  66. FENTANIL [Concomitant]
     Active Substance: FENTANYL
     Dosage: 20 ML
     Dates: start: 20200803, end: 20200803
  67. SCOPOLAMINE [HYOSCINE] [Concomitant]
     Active Substance: SCOPOLAMINE
     Dosage: .25 MG
     Dates: start: 20200802, end: 20200804
  68. FUROSEMIDA [FUROSEMIDE] [Concomitant]
     Active Substance: FUROSEMIDE
     Indication: PRODUCT USED FOR UNKNOWN INDICATION
     Dosage: 20 MG
     Dates: start: 20200731, end: 20200731
  69. LIDOCAINE HYDROCHLORIDE. [Concomitant]
     Active Substance: LIDOCAINE HYDROCHLORIDE

REACTIONS (1)
  - Tracheobronchitis [Not Recovered/Not Resolved]

NARRATIVE: CASE EVENT DATE: 20200727
